FAERS Safety Report 20852435 (Version 1)
Quarter: 2022Q2

REPORT INFORMATION
  Report Type: Spontaneous
  Country: US (occurrence: US)
  Receive Date: 20220520
  Receipt Date: 20220520
  Transmission Date: 20220721
  Serious: No
  Sender: FDA-Public Use
  Company Number: US-RECORDATI RARE DISEASE INC.-2022002064

PATIENT

DRUGS (3)
  1. CYSTADROPS [Suspect]
     Active Substance: CYSTEAMINE HYDROCHLORIDE
     Indication: Cystinosis
     Dosage: 2 GTT DROPS, QID
     Route: 047
     Dates: start: 202011, end: 20220510
  2. PREDNISONE [Concomitant]
     Active Substance: PREDNISONE
     Indication: Steroid therapy
     Dosage: 1 DOSAGE FORM, PRN
     Dates: start: 202105
  3. NORETHINDRONE [Concomitant]
     Active Substance: NORETHINDRONE
     Indication: Contraception
     Dosage: UNK
     Dates: start: 202105

REACTIONS (4)
  - Eye pain [Unknown]
  - Eye irritation [Unknown]
  - Product physical consistency issue [Recovered/Resolved]
  - Device difficult to use [Recovered/Resolved]
